FAERS Safety Report 9268284 (Version 1)
Quarter: 2013Q2

REPORT INFORMATION
  Report Type: Spontaneous
  Country: FR (occurrence: FR)
  Receive Date: 20130502
  Receipt Date: 20130502
  Transmission Date: 20140414
  Serious: Yes (Hospitalization)
  Sender: FDA-Public Use
  Company Number: FR-B.I. PHARMACEUTICALS,INC./RIDGEFIELD-2013-FF-01297FF

PATIENT
  Age: 58 Year
  Sex: Female
  Weight: 88 kg

DRUGS (6)
  1. PRADAXA [Suspect]
     Indication: ATRIAL FIBRILLATION
     Dosage: 300 MG
     Route: 048
     Dates: start: 20130308, end: 20130422
  2. DIGOXINE [Suspect]
     Indication: ATRIAL FIBRILLATION
     Dates: start: 20130308, end: 20130422
  3. CO-APROVEL [Concomitant]
     Indication: HYPERTENSION
  4. METFORMINE [Concomitant]
     Indication: TYPE 2 DIABETES MELLITUS
     Dosage: 3 G
  5. CORDARONE [Concomitant]
  6. CRESTOR [Concomitant]
     Indication: DYSLIPIDAEMIA
     Dosage: 5 MG

REACTIONS (5)
  - Dysphagia [Recovered/Resolved]
  - Dehydration [Recovered/Resolved]
  - Renal impairment [Recovered/Resolved]
  - Cardioactive drug level increased [Recovered/Resolved]
  - Nausea [Recovered/Resolved]
